FAERS Safety Report 5697888-3 (Version None)
Quarter: 2008Q2

REPORT INFORMATION
  Report Type: 
  Country: None (occurrence: None)
  Receive Date: 20080408
  Receipt Date: 20080401
  Transmission Date: 20081010
  Serious: Yes (Other)
  Sender: FDA-Public Use
  Company Number: GB-WYE-G01336308

PATIENT
  Sex: Male

DRUGS (2)
  1. EFFEXOR XR [Suspect]
     Dosage: 150MG DAILY
     Route: 048
     Dates: start: 20071101
  2. MOLIPAXIN [Concomitant]
     Indication: ASTHMA
     Dosage: 50MG, FREQUENCY UNKNOWN

REACTIONS (4)
  - AGGRESSION [None]
  - ASTHENIA [None]
  - PRURITUS [None]
  - VIOLENCE-RELATED SYMPTOM [None]
